FAERS Safety Report 13240706 (Version 1)
Quarter: 2017Q1

REPORT INFORMATION
  Report Type: Report from Study
  Country: BR (occurrence: BR)
  Receive Date: 20170216
  Receipt Date: 20170216
  Transmission Date: 20170428
  Serious: Yes (Other)
  Sender: FDA-Public Use
  Company Number: PHHY2014BR137235

PATIENT
  Age: 47 Year
  Sex: Female
  Weight: 44 kg

DRUGS (2)
  1. EXJADE [Suspect]
     Active Substance: DEFERASIROX
     Dosage: 1500 MG, QD (ONCE DAILY)
     Route: 048
  2. EXJADE [Suspect]
     Active Substance: DEFERASIROX
     Indication: SICKLE CELL ANAEMIA
     Dosage: 3 DF (35 MG/KG, QD)
     Route: 048

REACTIONS (17)
  - Depression [Unknown]
  - Nausea [Recovered/Resolved]
  - Diet refusal [Unknown]
  - Headache [Unknown]
  - Dizziness [Unknown]
  - Diarrhoea [Unknown]
  - Wrong drug administered [Unknown]
  - Weight decreased [Unknown]
  - Syncope [Unknown]
  - Rib deformity [Unknown]
  - Back pain [Unknown]
  - Cerebrovascular accident [Not Recovered/Not Resolved]
  - Drug ineffective [Unknown]
  - Pneumonia bacterial [Unknown]
  - Motion sickness [Unknown]
  - Nausea [Unknown]
  - Drug intolerance [Unknown]

NARRATIVE: CASE EVENT DATE: 201509
